FAERS Safety Report 6236095-2 (Version None)
Quarter: 2009Q2

REPORT INFORMATION
  Report Type: 
  Country: None (occurrence: None)
  Receive Date: 20090619
  Receipt Date: 20090616
  Transmission Date: 20091009
  Serious: Yes (Hospitalization)
  Sender: FDA-Public Use
  Company Number: US-BIOGENIDEC-2009BI018338

PATIENT
  Age: 38 Year
  Sex: Female
  Weight: 66 kg

DRUGS (7)
  1. TYSABRI [Suspect]
     Indication: MULTIPLE SCLEROSIS
     Route: 042
     Dates: start: 20080731
  2. GABAPENTIN [Concomitant]
     Indication: NEURALGIA
     Route: 048
     Dates: start: 20080801
  3. PROVIGIL [Concomitant]
     Indication: FATIGUE
     Route: 048
     Dates: start: 20080501
  4. PHENERGAN [Concomitant]
     Indication: NAUSEA
     Route: 042
     Dates: start: 20080731
  5. PHENERGAN [Concomitant]
     Route: 042
     Dates: start: 20080731
  6. AMLODIPINE [Concomitant]
     Indication: HYPERTENSION
     Route: 048
     Dates: start: 20081201
  7. D-AMPHETAMINE [Concomitant]
     Indication: HYPERTENSION
     Route: 048
     Dates: start: 20081201

REACTIONS (1)
  - UTERINE HAEMORRHAGE [None]
